FAERS Safety Report 18583522 (Version 4)
Quarter: 2021Q1

REPORT INFORMATION
  Report Type: Spontaneous
  Country: NO (occurrence: NO)
  Receive Date: 20201207
  Receipt Date: 20210227
  Transmission Date: 20210419
  Serious: Yes (Hospitalization, Other)
  Sender: FDA-Public Use
  Company Number: NO-ROCHE-2725534

PATIENT
  Age: 38 Year
  Sex: Female
  Weight: 52 kg

DRUGS (2)
  1. ROZLYTREK [Suspect]
     Active Substance: ENTRECTINIB
     Indication: GENE MUTATION
     Route: 048
  2. ROZLYTREK [Suspect]
     Active Substance: ENTRECTINIB
     Indication: CHOLANGIOCARCINOMA
     Route: 048

REACTIONS (8)
  - Depression [Unknown]
  - Troponin increased [Recovering/Resolving]
  - Constipation [Unknown]
  - Urinary retention [Recovered/Resolved]
  - Cardiotoxicity [Recovering/Resolving]
  - Amnesia [Unknown]
  - Chest discomfort [Recovering/Resolving]
  - Paraesthesia [Unknown]

NARRATIVE: CASE EVENT DATE: 20201218
